FAERS Safety Report 25996537 (Version 1)
Quarter: 2025Q4

REPORT INFORMATION
  Report Type: Spontaneous
  Country: US (occurrence: US)
  Receive Date: 20251104
  Receipt Date: 20251104
  Transmission Date: 20260118
  Serious: No
  Sender: CIPLA
  Company Number: US-CIPLA LTD.-2025US13541

PATIENT

DRUGS (3)
  1. ALBUTEROL [Suspect]
     Active Substance: ALBUTEROL
     Indication: Allergic sinusitis
     Dosage: 270 MICROGRAM, BID (3 PUFFS, ONE IN THE MORNING AND ONE IN THE AFTERNOON) 2 INHALERS
  2. ALBUTEROL [Suspect]
     Active Substance: ALBUTEROL
     Dosage: 270 MICROGRAM, BID (3 PUFFS, ONE IN THE MORNING AND ONE IN THE AFTERNOON)
     Dates: start: 20251015
  3. ALLEGRA [Concomitant]
     Active Substance: FEXOFENADINE HYDROCHLORIDE
     Indication: Hypersensitivity
     Dosage: UNK
     Route: 065

REACTIONS (4)
  - Drug dose omission by device [Unknown]
  - Device delivery system issue [Unknown]
  - Product packaging quantity issue [Unknown]
  - Off label use [Unknown]
